FAERS Safety Report 22044215 (Version 1)
Quarter: 2023Q1

REPORT INFORMATION
  Report Type: Spontaneous
  Country: JP (occurrence: JP)
  Receive Date: 20230228
  Receipt Date: 20230228
  Transmission Date: 20230417
  Serious: Yes (Other)
  Sender: FDA-Public Use
  Company Number: JP-PFIZER INC-PV202300033603

PATIENT
  Age: 54 Year
  Sex: Female
  Weight: 62 kg

DRUGS (7)
  1. HYDROCORTISONE SODIUM SUCCINATE [Suspect]
     Active Substance: HYDROCORTISONE SODIUM SUCCINATE
     Indication: Vasculitis
     Dosage: 1000 MG, DAILY FOR 3 DAYS
     Route: 041
  2. NICARDIPINE [Concomitant]
     Active Substance: NICARDIPINE
     Indication: Reversible cerebral vasoconstriction syndrome
     Dosage: UNK
     Route: 042
  3. CYCLOPHOSPHAMIDE [Concomitant]
     Active Substance: CYCLOPHOSPHAMIDE
     Dosage: 500 MG, DAILY
     Route: 042
  4. LEVETIRACETAM [Concomitant]
     Active Substance: LEVETIRACETAM
     Dosage: 1000 MG, DAILY
     Route: 041
  5. ASPIRIN [Concomitant]
     Active Substance: ASPIRIN
     Dosage: 200 MG, DAILY
     Route: 048
  6. CLOPIDOGREL [Concomitant]
     Active Substance: CLOPIDOGREL BISULFATE
     Dosage: 75 MG, DAILY
     Route: 048
  7. EDARAVONE [Concomitant]
     Active Substance: EDARAVONE
     Dosage: 60 MG, DAILY
     Route: 042

REACTIONS (5)
  - Blindness [Recovering/Resolving]
  - Arterial stenosis [Recovering/Resolving]
  - Aphasia [Recovering/Resolving]
  - Altered state of consciousness [Unknown]
  - Product use in unapproved indication [Unknown]
